FAERS Safety Report 7871729-8 (Version None)
Quarter: 2011Q4

REPORT INFORMATION
  Report Type: 
  Country: None (occurrence: None)
  Receive Date: 20111029
  Receipt Date: 20110307
  Transmission Date: 20120403
  Serious: No
  Sender: FDA-Public Use
  Company Number: US-AMGEN-USASP2011012758

PATIENT
  Age: 62 Year
  Sex: Female

DRUGS (1)
  1. ENBREL [Suspect]
     Indication: RHEUMATOID ARTHRITIS
     Dosage: 50 MG, QWK
     Dates: start: 19960101, end: 20110101

REACTIONS (5)
  - GAIT DISTURBANCE [None]
  - RHEUMATOID ARTHRITIS [None]
  - INCREASED UPPER AIRWAY SECRETION [None]
  - OESOPHAGEAL PAIN [None]
  - PAIN [None]
